FAERS Safety Report 5389308-3 (Version None)
Quarter: 2007Q3

REPORT INFORMATION
  Report Type: 
  Country: None (occurrence: None)
  Receive Date: 20070717
  Receipt Date: 20070706
  Transmission Date: 20080115
  Serious: Yes (Other)
  Sender: FDA-Public Use
  Company Number: US-JNJFOC-20070503914

PATIENT
  Sex: Female
  Weight: 85.73 kg

DRUGS (5)
  1. REMICADE [Suspect]
     Route: 042
  2. REMICADE [Suspect]
     Route: 042
  3. REMICADE [Suspect]
     Indication: COLITIS ULCERATIVE
     Route: 042
  4. FLAGYL [Concomitant]
  5. ENTOCORT EC [Concomitant]

REACTIONS (9)
  - ANTIPHOSPHOLIPID ANTIBODIES POSITIVE [None]
  - ARTHRALGIA [None]
  - EAR PAIN [None]
  - GASTROOESOPHAGEAL REFLUX DISEASE [None]
  - MUSCULOSKELETAL STIFFNESS [None]
  - MYALGIA [None]
  - OEDEMA PERIPHERAL [None]
  - PAIN IN JAW [None]
  - PHARYNGEAL OEDEMA [None]
